FAERS Safety Report 20032130 (Version 1)
Quarter: 2021Q4

REPORT INFORMATION
  Report Type: Spontaneous
  Country: CN (occurrence: CN)
  Receive Date: 20211103
  Receipt Date: 20211103
  Transmission Date: 20220303
  Serious: Yes (Other)
  Sender: FDA-Public Use
  Company Number: CN-BoehringerIngelheim-2021-BI-135332

PATIENT
  Age: 71 Year
  Sex: Female
  Weight: 46.000 kg

DRUGS (6)
  1. ATROVENT [Suspect]
     Active Substance: IPRATROPIUM BROMIDE
     Indication: Drug therapy
     Route: 055
     Dates: start: 20211006, end: 20211010
  2. BUDESONIDE [Suspect]
     Active Substance: BUDESONIDE
     Indication: Drug therapy
     Dosage: SUSPENSION FOR INHALATION; FOA: SUSPENSION
     Route: 055
     Dates: start: 20211006, end: 20211010
  3. TERBUTALINE SULFATE [Suspect]
     Active Substance: TERBUTALINE SULFATE
     Indication: Drug therapy
     Dosage: FOA: ATOMIZED SOLUTION
     Route: 055
     Dates: start: 20211006, end: 20211010
  4. DOXOFYLLINE [Concomitant]
     Active Substance: DOXOFYLLINE
     Indication: Drug therapy
     Route: 042
     Dates: start: 20211006, end: 20211011
  5. PIPERACILLIN SODIUM\TAZOBACTAM SODIUM [Concomitant]
     Active Substance: PIPERACILLIN SODIUM\TAZOBACTAM SODIUM
     Indication: Drug therapy
     Route: 042
     Dates: start: 20211006, end: 20211011
  6. AMBROXOL HYDROCHLORIDE [Concomitant]
     Active Substance: AMBROXOL HYDROCHLORIDE
     Indication: Drug therapy
     Route: 042
     Dates: start: 20211006, end: 20211011

REACTIONS (1)
  - Skin injury [Recovering/Resolving]

NARRATIVE: CASE EVENT DATE: 20211007
